FAERS Safety Report 7521477-9 (Version None)
Quarter: 2011Q2

REPORT INFORMATION
  Report Type: 
  Country: None (occurrence: None)
  Receive Date: 20110603
  Receipt Date: 20110301
  Transmission Date: 20111010
  Serious: Yes (Other)
  Sender: FDA-Public Use
  Company Number: US-BAYER-2010-001657

PATIENT
  Sex: Female

DRUGS (7)
  1. LOMOTIL [Concomitant]
  2. CELEXA [Concomitant]
  3. INTERFERON BETA-1B [Suspect]
     Dosage: 8 MIU, QOD
     Route: 058
  4. ACETAMINOPHEN [Concomitant]
  5. NEURONTIN [Concomitant]
  6. INTERFERON BETA-1B [Suspect]
     Indication: MULTIPLE SCLEROSIS
     Dosage: 8 MIU, QOD
     Route: 058
     Dates: start: 20090922, end: 20110103
  7. INTERFERON BETA-1B [Suspect]
     Dosage: 4 MIU, QOD
     Route: 058
     Dates: start: 20110121

REACTIONS (4)
  - BLINDNESS TRANSIENT [None]
  - POLLAKIURIA [None]
  - DIARRHOEA [None]
  - ASTHENIA [None]
